FAERS Safety Report 9582621 (Version 1)
Quarter: 2013Q4

REPORT INFORMATION
  Report Type: Spontaneous
  Country: US (occurrence: US)
  Receive Date: 20131002
  Receipt Date: 20131002
  Transmission Date: 20140711
  Serious: No
  Sender: FDA-Public Use
  Company Number: US-AMGEN-USASP2013041648

PATIENT
  Age: 58 Year
  Sex: Female
  Weight: 65.76 kg

DRUGS (9)
  1. ENBREL [Suspect]
     Indication: PRODUCT USED FOR UNKNOWN INDICATION
     Dosage: 50 MG, QWK
     Route: 058
  2. MELOXICAM [Concomitant]
     Dosage: 15 MG, UNK
  3. METHOTREXATE [Concomitant]
     Dosage: 2.5 MG, UNK
  4. PRILOSEC                           /00661201/ [Concomitant]
     Dosage: 40 MG, UNK
  5. VITAMIN B12                        /00056201/ [Concomitant]
     Dosage: 1000 MUG, UNK
  6. VITAMIN D                          /00107901/ [Concomitant]
     Dosage: 1000 UNIT, UNK
  7. IRON [Concomitant]
     Dosage: 325 MG, UNK
  8. BIOTIN [Concomitant]
     Dosage: 5000 UNK, UNK
  9. MULTIVITAMINS, PLAIN [Concomitant]
     Dosage: UNK

REACTIONS (1)
  - Iritis [Unknown]
